FAERS Safety Report 10483536 (Version 1)
Quarter: 2014Q3

REPORT INFORMATION
  Report Type: Spontaneous
  Country: US (occurrence: None)
  Receive Date: 20140929
  Receipt Date: 20140929
  Transmission Date: 20150326
  Serious: Yes (Other)
  Sender: FDA-Public Use
  Company Number: None

PATIENT
  Age: 68 Year
  Sex: Male
  Weight: 75.3 kg

DRUGS (1)
  1. ADVANCE WHITE TOOTHPASTE ARM + HAMMER [Suspect]
     Active Substance: SODIUM FLUORIDE
     Indication: DENTAL CARE
     Dates: start: 20140904, end: 20140925

REACTIONS (7)
  - Glossitis [None]
  - Dry mouth [None]
  - Lip dry [None]
  - Gingival pain [None]
  - Product formulation issue [None]
  - Cheilitis [None]
  - Lip swelling [None]

NARRATIVE: CASE EVENT DATE: 20140904
